FAERS Safety Report 23099134 (Version 1)
Quarter: 2023Q4

REPORT INFORMATION
  Report Type: Spontaneous
  Country: ES (occurrence: ES)
  Receive Date: 20231024
  Receipt Date: 20231024
  Transmission Date: 20240109
  Serious: Yes (Hospitalization)
  Sender: FDA-Public Use
  Company Number: ES-UCBSA-2023047756

PATIENT
  Age: 76 Year
  Sex: Female

DRUGS (1)
  1. ROMOSOZUMAB [Suspect]
     Active Substance: ROMOSOZUMAB
     Indication: Osteoporosis
     Dosage: UNK, MONTHLY (QM)
     Route: 065
     Dates: start: 20230530

REACTIONS (1)
  - Thrombosis [Recovering/Resolving]

NARRATIVE: CASE EVENT DATE: 20230925
